FAERS Safety Report 9473491 (Version 1)
Quarter: 2013Q3

REPORT INFORMATION
  Report Type: Spontaneous
  Country: US (occurrence: US)
  Receive Date: 20130823
  Receipt Date: 20130823
  Transmission Date: 20140515
  Serious: No
  Sender: FDA-Public Use
  Company Number: US-BRISTOL-MYERS SQUIBB COMPANY-19033125

PATIENT
  Age: 49 Year
  Sex: Male

DRUGS (1)
  1. SPRYCEL [Suspect]
     Indication: MYELODYSPLASTIC SYNDROME
     Dosage: TABS?DOSE INCREASED FROM 1 TAB TO 3 TABS/DAY
     Route: 048
     Dates: start: 201207

REACTIONS (1)
  - Off label use [Unknown]
